FAERS Safety Report 18997574 (Version 1)
Quarter: 2021Q1

REPORT INFORMATION
  Report Type: Spontaneous
  Country: PL (occurrence: PL)
  Receive Date: 20210311
  Receipt Date: 20210311
  Transmission Date: 20210420
  Serious: Yes (Hospitalization)
  Sender: FDA-Public Use
  Company Number: PL-PFIZER INC-2021238209

PATIENT
  Age: 54 Year
  Sex: Female

DRUGS (6)
  1. RISPERIDONE. [Interacting]
     Active Substance: RISPERIDONE
     Dosage: 4 MG, DAILY
  2. CELECOXIB. [Interacting]
     Active Substance: CELECOXIB
     Dosage: 200 MG
  3. GINKGO BILOBA EXTRACT [Interacting]
     Active Substance: GINKGO
     Indication: SOMNOLENCE
     Dosage: 240 MG, DAILY
  4. ATORVASTATIN CALCIUM. [Interacting]
     Active Substance: ATORVASTATIN CALCIUM
     Indication: DYSLIPIDAEMIA
     Dosage: 40 MG, DAILY
  5. NEBIVOLOL. [Interacting]
     Active Substance: NEBIVOLOL
     Dosage: 5 MG, DAILY
  6. AMLODIPINE BESILATE [Suspect]
     Active Substance: AMLODIPINE BESYLATE
     Indication: HYPERTENSION
     Dosage: 10 MG, DAILY

REACTIONS (2)
  - Drug interaction [Recovered/Resolved]
  - Swollen tongue [Recovered/Resolved]
